FAERS Safety Report 8555569-2 (Version None)
Quarter: 2012Q3

REPORT INFORMATION
  Report Type: 
  Country: None (occurrence: None)
  Receive Date: 20120731
  Receipt Date: 20110729
  Transmission Date: 20120928
  Serious: No
  Sender: FDA-Public Use
  Company Number: US-ASTRAZENECA-2010SE59149

PATIENT
  Age: 47 Year
  Sex: Male

DRUGS (6)
  1. NERVE PILL [Concomitant]
  2. SEROQUEL [Suspect]
     Indication: INSOMNIA
     Dosage: TAKING DIFFERENT DOSES.
     Route: 048
     Dates: start: 20101001
  3. SEROQUEL [Suspect]
     Dosage: TAKING DIFFERENT DOSES.
     Route: 048
     Dates: start: 20100101
  4. SEROQUEL [Suspect]
     Dosage: TAKING DIFFERENT DOSES.
     Route: 048
     Dates: start: 20100101
  5. SEROQUEL [Suspect]
     Indication: BIPOLAR DISORDER
     Dosage: TAKING DIFFERENT DOSES.
     Route: 048
     Dates: start: 20101001
  6. HIGH BP MEDICINE [Concomitant]

REACTIONS (5)
  - INSOMNIA [None]
  - DEPRESSION [None]
  - PAIN [None]
  - DRUG INEFFECTIVE [None]
  - RHEUMATOID ARTHRITIS [None]
